FAERS Safety Report 19198710 (Version 1)
Quarter: 2021Q2

REPORT INFORMATION
  Report Type: Spontaneous
  Country: US (occurrence: US)
  Receive Date: 20210430
  Receipt Date: 20210430
  Transmission Date: 20210717
  Serious: No
  Sender: FDA-Public Use
  Company Number: US-SA-2021SA142101

PATIENT
  Age: 23 Year
  Sex: Female

DRUGS (1)
  1. DUPIXENT [Suspect]
     Active Substance: DUPILUMAB
     Indication: DERMATITIS ATOPIC
     Dosage: 300 MG
     Route: 050
     Dates: start: 202010

REACTIONS (3)
  - Skin disorder [Recovering/Resolving]
  - Intra-uterine contraceptive device removal [Unknown]
  - Drug ineffective [Unknown]

NARRATIVE: CASE EVENT DATE: 202101
